FAERS Safety Report 6091816-7 (Version None)
Quarter: 2009Q1

REPORT INFORMATION
  Report Type: 
  Country: None (occurrence: None)
  Receive Date: 20090225
  Receipt Date: 20080715
  Transmission Date: 20090719
  Serious: No
  Sender: FDA-Public Use
  Company Number: A0737698A

PATIENT
  Sex: Female

DRUGS (1)
  1. VALTREX [Suspect]
     Dosage: 500MG SEE DOSAGE TEXT
     Dates: end: 20071101

REACTIONS (3)
  - FIBROMYALGIA [None]
  - INTENTIONAL DRUG MISUSE [None]
  - THERAPEUTIC RESPONSE UNEXPECTED [None]
